FAERS Safety Report 4657394-1 (Version None)
Quarter: 2005Q2

REPORT INFORMATION
  Report Type: 
  Country: None (occurrence: None)
  Receive Date: 20050405
  Receipt Date: 20041204
  Transmission Date: 20051028
  Serious: Yes (Hospitalization)
  Sender: FDA-Public Use
  Company Number: 2004061975

PATIENT
  Age: 16 Year
  Sex: Female

DRUGS (4)
  1. GEODON [Suspect]
     Indication: BIPOLAR DISORDER
     Dosage: ORAL
     Route: 048
     Dates: start: 20040507, end: 20040804
  2. VENLAFAXINE HCL [Concomitant]
  3. MIRTAZAPINE [Concomitant]
  4. METHYLPHENIDATE HCL [Concomitant]

REACTIONS (4)
  - AGITATION [None]
  - AMENORRHOEA [None]
  - BLOOD PROLACTIN INCREASED [None]
  - DEPRESSION [None]
